FAERS Safety Report 17114306 (Version 1)
Quarter: 2019Q4

REPORT INFORMATION
  Report Type: Spontaneous
  Country: NL (occurrence: NL)
  Receive Date: 20191205
  Receipt Date: 20191205
  Transmission Date: 20200122
  Serious: Yes (Life-Threatening, Other)
  Sender: FDA-Public Use
  Company Number: NL-TEVA-2019-NL-1146587

PATIENT
  Age: 75 Year
  Sex: Female
  Weight: 62 kg

DRUGS (4)
  1. METORPOLOL 100MG [Concomitant]
     Dosage: 100 MILLIGRAM DAILY; 1 X PER DAY
  2. AMLODIPINE [Concomitant]
     Active Substance: AMLODIPINE BESYLATE
     Dosage: 5 MILLIGRAM DAILY; 1 X PER DAY
  3. ADAPALEEN GEL [Concomitant]
     Dosage: 1 DOSAGE FORMS DAILY; 1 X PER DAY
  4. OMEPRAZOL MAAGSAPRESISTENTE CAPSULE, 20 MG (MILLIGRAM) [Suspect]
     Active Substance: OMEPRAZOLE SODIUM
     Indication: GASTRITIS
     Dosage: 20 MILLIGRAM DAILY; 1X PER DAY 1 PIECE
     Dates: start: 19920101, end: 20191024

REACTIONS (4)
  - Hypomagnesaemia [Recovered/Resolved]
  - Thrombocytopenia [Recovered/Resolved]
  - Hypokalaemia [Recovered/Resolved]
  - Hypocalcaemia [Recovered/Resolved]

NARRATIVE: CASE EVENT DATE: 20191021
